FAERS Safety Report 6791070-4 (Version None)
Quarter: 2010Q2

REPORT INFORMATION
  Report Type: 
  Country: None (occurrence: None)
  Receive Date: 20100623
  Receipt Date: 20100623
  Transmission Date: 20101027
  Serious: Yes (Hospitalization, Other)
  Sender: FDA-Public Use
  Company Number: None

PATIENT
  Age: 54 Year
  Sex: Female
  Weight: 103 kg

DRUGS (14)
  1. LISINOPRIL [Suspect]
     Indication: HYPERTENSION
     Dosage: 5 MG QD PO, CHRONIC USE
     Route: 048
  2. DIPHENHYDRAMINE [Concomitant]
  3. ACETAMINOPHEN [Concomitant]
  4. CALCIUM GLUCONATE [Concomitant]
  5. POTASSIUM PHOSPHATES [Concomitant]
  6. FAMOTIDINE [Concomitant]
  7. METHYLPREDNISOLONE ACETATE [Concomitant]
  8. HEPARIN [Concomitant]
  9. ALBUMIN (HUMAN) [Concomitant]
  10. PYRIDOSTIGMINE BROMIDE [Concomitant]
  11. POTASSIUM CHLORIDE [Concomitant]
  12. LORAZEPAM [Concomitant]
  13. HALOPERIDOL [Concomitant]
  14. OLANZAPINE [Concomitant]

REACTIONS (1)
  - ANAPHYLACTIC REACTION [None]
